FAERS Safety Report 23403292 (Version 1)
Quarter: 2024Q1

REPORT INFORMATION
  Report Type: Spontaneous
  Country: CN (occurrence: CN)
  Receive Date: 20240116
  Receipt Date: 20240116
  Transmission Date: 20240410
  Serious: Yes (Other)
  Sender: FDA-Public Use
  Company Number: CN-ALKEM LABORATORIES LIMITED-CN-ALKEM-2023-11474

PATIENT
  Age: 59 Year
  Sex: Female

DRUGS (11)
  1. CAPECITABINE [Suspect]
     Active Substance: CAPECITABINE
     Indication: Colorectal cancer metastatic
     Dosage: UNK
     Route: 048
  2. CAPECITABINE [Suspect]
     Active Substance: CAPECITABINE
     Indication: Colorectal cancer stage IV
  3. BEVACIZUMAB [Suspect]
     Active Substance: BEVACIZUMAB
     Indication: Colorectal cancer metastatic
     Dosage: UNK (MAINTENANCE TREATMENT)
     Route: 065
     Dates: start: 20210313
  4. BEVACIZUMAB [Suspect]
     Active Substance: BEVACIZUMAB
     Indication: Colorectal cancer stage IV
  5. OXALIPLATIN [Suspect]
     Active Substance: OXALIPLATIN
     Indication: Colorectal cancer metastatic
     Dosage: UNK
     Route: 065
     Dates: start: 20210313
  6. OXALIPLATIN [Suspect]
     Active Substance: OXALIPLATIN
     Indication: Colorectal cancer stage IV
  7. OLAPARIB [Suspect]
     Active Substance: OLAPARIB
     Indication: Colorectal cancer metastatic
     Dosage: 600 MILLIGRAM, QD
     Route: 048
     Dates: start: 20210516
  8. OLAPARIB [Suspect]
     Active Substance: OLAPARIB
     Indication: Colorectal cancer stage IV
     Dosage: 450 MILLIGRAM, QD (REDUCED DOSE)
     Route: 048
  9. OLAPARIB [Suspect]
     Active Substance: OLAPARIB
     Dosage: 300 MILLIGRAM, QD (REDUCED DOSE)
     Route: 048
  10. TISLELIZUMAB [Suspect]
     Active Substance: TISLELIZUMAB
     Indication: Colorectal cancer metastatic
     Dosage: 200 MILLIGRAM (EVERY 3 WEEKS)
     Route: 065
     Dates: start: 20210516
  11. TISLELIZUMAB [Suspect]
     Active Substance: TISLELIZUMAB
     Indication: Colorectal cancer stage IV

REACTIONS (8)
  - Interstitial lung disease [Unknown]
  - Hypokalaemia [Unknown]
  - Diarrhoea [Unknown]
  - Haematotoxicity [Recovering/Resolving]
  - Hypoproteinaemia [Unknown]
  - Vomiting [Unknown]
  - Anaemia [Unknown]
  - Therapy partial responder [Unknown]
